FAERS Safety Report 6275978-4 (Version None)
Quarter: 2009Q3

REPORT INFORMATION
  Report Type: 
  Country: None (occurrence: None)
  Receive Date: 20090720
  Receipt Date: 20090701
  Transmission Date: 20100115
  Serious: Yes (Death)
  Sender: FDA-Public Use
  Company Number: 2009AL002148

PATIENT
  Age: 81 Year
  Sex: Female

DRUGS (20)
  1. DIGOXIN [Suspect]
     Dosage: 0.25MG, DAILY, PO
     Route: 048
     Dates: start: 20080320, end: 20080412
  2. ZETIA [Concomitant]
  3. COUMADIN [Concomitant]
  4. FLEXERIL [Concomitant]
  5. MACROBID [Concomitant]
  6. DIOVAN [Concomitant]
  7. ISMO [Concomitant]
  8. LOPRESSOR [Concomitant]
  9. NORVASC [Concomitant]
  10. LEVAQUIN [Concomitant]
  11. PRAVACHOL [Concomitant]
  12. LASIX [Concomitant]
  13. KAY CIEL DURA-TABS [Concomitant]
  14. PHENERGAN [Concomitant]
  15. NITROFURANTOIN [Concomitant]
  16. AMLODIPINE [Concomitant]
  17. ISOSORBIDE DINITRATE [Concomitant]
  18. KLOR-CON [Concomitant]
  19. PRAVASTATIN [Concomitant]
  20. CYCLIBENZAPRINE [Concomitant]

REACTIONS (22)
  - ABDOMINAL PAIN [None]
  - ALTERED STATE OF CONSCIOUSNESS [None]
  - ATRIAL FIBRILLATION [None]
  - CEREBROVASCULAR ACCIDENT [None]
  - COMPUTERISED TOMOGRAM ABNORMAL [None]
  - CONFUSIONAL STATE [None]
  - DECREASED APPETITE [None]
  - DEHYDRATION [None]
  - DIARRHOEA [None]
  - DISORIENTATION [None]
  - DYSURIA [None]
  - ECONOMIC PROBLEM [None]
  - HAEMOGLOBIN INCREASED [None]
  - MALAISE [None]
  - MULTIPLE INJURIES [None]
  - MYOCARDIAL INFARCTION [None]
  - NAUSEA [None]
  - PARANOIA [None]
  - RENAL FAILURE ACUTE [None]
  - SOMNOLENCE [None]
  - TROPONIN INCREASED [None]
  - VOMITING [None]
